FAERS Safety Report 25196701 (Version 1)
Quarter: 2025Q2

REPORT INFORMATION
  Report Type: Spontaneous
  Country: PT (occurrence: PT)
  Receive Date: 20250415
  Receipt Date: 20250415
  Transmission Date: 20250716
  Serious: Yes (Death)
  Sender: TEVA
  Company Number: PT-TEVA-VS-3320648

PATIENT
  Age: 64 Year
  Sex: Female

DRUGS (3)
  1. LAMOTRIGINE [Suspect]
     Active Substance: LAMOTRIGINE
     Indication: Status epilepticus
     Route: 065
  2. ESLICARBAZEPINE ACETATE [Suspect]
     Active Substance: ESLICARBAZEPINE ACETATE
     Indication: Status epilepticus
     Route: 048
  3. EZOGABINE [Suspect]
     Active Substance: EZOGABINE
     Indication: Status epilepticus
     Route: 065

REACTIONS (2)
  - Drug ineffective [Fatal]
  - Product dose omission issue [Fatal]
